FAERS Safety Report 10489613 (Version 2)
Quarter: 2014Q4

REPORT INFORMATION
  Report Type: Spontaneous
  Country: ES (occurrence: ES)
  Receive Date: 20141002
  Receipt Date: 20141010
  Transmission Date: 20150528
  Serious: Yes (Death, Hospitalization)
  Sender: FDA-Public Use
  Company Number: ES-BAYER-2014-146371

PATIENT
  Age: 61 Year
  Sex: Male

DRUGS (14)
  1. LYRICA [Concomitant]
     Active Substance: PREGABALIN
     Indication: NEURALGIA
     Dosage: QD
     Route: 048
     Dates: start: 20130709, end: 20131112
  2. PANTOPRAZOLE [Concomitant]
     Active Substance: PANTOPRAZOLE SODIUM
     Indication: PROPHYLAXIS AGAINST GASTROINTESTINAL ULCER
     Dosage: 1 DF
     Route: 048
  3. SEVREDOL [Concomitant]
     Active Substance: MORPHINE
     Indication: PAIN
     Dosage: QID
     Route: 048
     Dates: start: 20131001, end: 20131112
  4. ADIRO 100 [Suspect]
     Active Substance: ASPIRIN
     Indication: MYOCARDIAL ISCHAEMIA
     Dosage: 1 DF
     Route: 048
     Dates: start: 20131001, end: 20131112
  5. MST CONTINUS [Concomitant]
     Active Substance: MORPHINE SULFATE
     Indication: PAIN
     Dosage: BID
     Route: 048
     Dates: start: 20131001, end: 20131112
  6. ERYTHROPOIETIN [Concomitant]
     Active Substance: ERYTHROPOIETIN
     Indication: CHRONIC KIDNEY DISEASE
     Dosage: 1 INJECTION PER MONTH
     Dates: start: 2011
  7. OMNIC [Concomitant]
     Active Substance: TAMSULOSIN HYDROCHLORIDE
     Indication: BENIGN PROSTATIC HYPERPLASIA
     Dosage: 0.4 MG
     Route: 048
     Dates: start: 2011
  8. URBAL [Concomitant]
     Indication: CHRONIC GASTRITIS
     Dosage: QD
     Route: 048
  9. ALMAX [Concomitant]
     Indication: CHRONIC GASTRITIS
     Dosage: BID
     Route: 048
     Dates: start: 2011
  10. SEGURIL [Concomitant]
     Active Substance: FUROSEMIDE
     Indication: CARDIAC FAILURE CONGESTIVE
     Dosage: 1 DF
     Route: 048
  11. SYMBICORT [Concomitant]
     Active Substance: BUDESONIDE\FORMOTEROL FUMARATE DIHYDRATE
     Dosage: 1 DF, BID
     Route: 055
     Dates: start: 2011
  12. CARVEDILOL. [Concomitant]
     Active Substance: CARVEDILOL
     Indication: CARDIAC FAILURE
     Dosage: OM
     Route: 048
     Dates: start: 2003
  13. SINTROM [Interacting]
     Active Substance: ACENOCOUMAROL
     Indication: CARDIAC VALVE PROSTHESIS USER
     Dosage: UNK
     Route: 048
     Dates: start: 201302, end: 20131112
  14. DACORTIN [Concomitant]
     Active Substance: PREDNISONE
     Indication: RHEUMATOID ARTHRITIS
     Dosage: 1.5 DF, QD
     Route: 048
     Dates: start: 20131001, end: 20131112

REACTIONS (2)
  - Haemoptysis [Fatal]
  - Subarachnoid haemorrhage [Not Recovered/Not Resolved]

NARRATIVE: CASE EVENT DATE: 20131116
